FAERS Safety Report 15334074 (Version 1)
Quarter: 2018Q3

REPORT INFORMATION
  Report Type: Spontaneous
  Country: GB (occurrence: GB)
  Receive Date: 20180830
  Receipt Date: 20180830
  Transmission Date: 20181010
  Serious: Yes (Life-Threatening, Hospitalization)
  Sender: FDA-Public Use
  Company Number: GB-ASTRAZENECA-2018SF06141

PATIENT
  Age: 56 Year
  Sex: Male

DRUGS (10)
  1. AMLODIPINE [Concomitant]
     Active Substance: AMLODIPINE BESYLATE
  2. DAPAGLIFLOZIN. [Suspect]
     Active Substance: DAPAGLIFLOZIN
     Route: 048
     Dates: end: 20180807
  3. NOVOMIX [Concomitant]
     Active Substance: INSULIN ASPART
     Dosage: 100UNITS/ML SUSPENSION FOR INJECTION
  4. RENNIE [Concomitant]
     Active Substance: MAGNESIUM CARBONATE
  5. TAMSULOSIN [Concomitant]
     Active Substance: TAMSULOSIN
     Dosage: 400UG/INHAL
  6. COCODAMOL [Concomitant]
     Active Substance: ACETAMINOPHEN\CODEINE PHOSPHATE
     Dosage: 30MG/500MG
  7. AIROMIR [Concomitant]
     Active Substance: ALBUTEROL SULFATE
     Dosage: 100UG/INHAL
     Route: 055
  8. RAMIPRIL. [Concomitant]
     Active Substance: RAMIPRIL
  9. METFORMIN [Concomitant]
     Active Substance: METFORMIN HYDROCHLORIDE
  10. QVAR [Concomitant]
     Active Substance: BECLOMETHASONE DIPROPIONATE

REACTIONS (1)
  - Diabetic ketoacidosis [Recovering/Resolving]

NARRATIVE: CASE EVENT DATE: 20180807
